FAERS Safety Report 11385887 (Version 2)
Quarter: 2018Q1

REPORT INFORMATION
  Report Type: Report from Study
  Country: GB (occurrence: GB)
  Receive Date: 20150817
  Receipt Date: 20180129
  Transmission Date: 20180508
  Serious: Yes (Hospitalization, Other)
  Sender: FDA-Public Use
  Company Number: GB-AMGEN-GBRSL2015081765

PATIENT
  Age: 88 Year
  Sex: Male

DRUGS (1)
  1. ARANESP [Suspect]
     Active Substance: DARBEPOETIN ALFA
     Indication: PRODUCT USED FOR UNKNOWN INDICATION
     Dosage: 50 MUG, Q2WK
     Route: 065

REACTIONS (4)
  - Lower respiratory tract infection [Unknown]
  - Mobility decreased [Unknown]
  - Hospitalisation [Not Recovered/Not Resolved]
  - Limb discomfort [Unknown]
